FAERS Safety Report 8494858-7 (Version None)
Quarter: 2012Q2

REPORT INFORMATION
  Report Type: 
  Country: None (occurrence: None)
  Receive Date: 20120405
  Receipt Date: 20100415
  Transmission Date: 20120825
  Serious: Yes (Other)
  Sender: FDA-Public Use
  Company Number: PHHY2010US24466

PATIENT
  Age: 84 Year
  Sex: Female
  Weight: 80.3 kg

DRUGS (2)
  1. RECLAST [Suspect]
     Indication: OSTEOPOROSIS
     Dosage: 5 MG, YEARLY, INTRAVENOUS
     Route: 042
     Dates: start: 20090201
  2. RECLAST [Suspect]
     Indication: OSTEOARTHRITIS
     Dosage: 5 MG, YEARLY, INTRAVENOUS
     Route: 042
     Dates: start: 20090201

REACTIONS (2)
  - INFUSION SITE SWELLING [None]
  - INFUSION SITE EXTRAVASATION [None]
